FAERS Safety Report 5700968-7 (Version None)
Quarter: 2008Q2

REPORT INFORMATION
  Report Type: 
  Country: None (occurrence: None)
  Receive Date: 20080410
  Receipt Date: 20080401
  Transmission Date: 20081010
  Serious: Yes (Hospitalization)
  Sender: FDA-Public Use
  Company Number: GB-ROCHE-556592

PATIENT
  Sex: Female
  Weight: 120.7 kg

DRUGS (6)
  1. ORLISTAT [Suspect]
     Indication: OBESITY
     Route: 048
     Dates: start: 20070724, end: 20080219
  2. PARACETAMOL [Concomitant]
     Indication: ANALGESIA
     Route: 048
  3. DISTALGESIC [Concomitant]
     Indication: GASTRIC DISORDER
     Route: 048
  4. DISTALGESIC [Concomitant]
     Route: 048
  5. LAXATIVE NOS [Concomitant]
  6. MULTIPLE OTHER MEDICATIONS [Concomitant]

REACTIONS (1)
  - APPENDIX DISORDER [None]
